FAERS Safety Report 13158120 (Version 2)
Quarter: 2017Q1

REPORT INFORMATION
  Report Type: Report from Study
  Country: NL (occurrence: NL)
  Receive Date: 20170127
  Receipt Date: 20170206
  Transmission Date: 20170428
  Serious: Yes (Hospitalization, Other)
  Sender: FDA-Public Use
  Company Number: NL-IPSEN BIOPHARMACEUTICALS, INC.-2016-11320

PATIENT
  Age: 58 Year
  Sex: Male
  Weight: 88 kg

DRUGS (7)
  1. ALLOPURINOL. [Concomitant]
     Active Substance: ALLOPURINOL
     Route: 048
  2. HYDROCHLOROTHIAZIDE. [Concomitant]
     Active Substance: HYDROCHLOROTHIAZIDE
     Route: 048
  3. FOSINOPRIL [Concomitant]
     Active Substance: FOSINOPRIL
     Route: 048
  4. ADALAT [Concomitant]
     Active Substance: NIFEDIPINE
     Route: 048
  5. ETALPHA [Concomitant]
     Active Substance: ALFACALCIDOL
     Route: 048
  6. LANREOTIDE [Suspect]
     Active Substance: LANREOTIDE
     Indication: OFF LABEL USE
  7. LANREOTIDE [Suspect]
     Active Substance: LANREOTIDE
     Indication: CONGENITAL CYSTIC KIDNEY DISEASE
     Dosage: 120 MG
     Route: 058
     Dates: end: 20161125

REACTIONS (20)
  - Renal impairment [Unknown]
  - Atelectasis [Unknown]
  - Inguinal hernia [Unknown]
  - Pancreatic abscess [Recovered/Resolved]
  - Duodenal stenosis [Not Recovered/Not Resolved]
  - Pancreatic fistula [Recovered/Resolved]
  - Necrotising soft tissue infection [Recovering/Resolving]
  - Bile duct stone [Not Recovered/Not Resolved]
  - Pancreatitis necrotising [Recovering/Resolving]
  - Pleural effusion [Unknown]
  - Impaired gastric emptying [Not Recovered/Not Resolved]
  - Hypoxia [Unknown]
  - Renal impairment [Unknown]
  - Off label use [Unknown]
  - Pancreatic duct dilatation [Unknown]
  - Hypokalaemia [Unknown]
  - Biliary dilatation [Unknown]
  - Pancreatitis acute [Recovering/Resolving]
  - Pneumonia [Unknown]
  - Hepatic cyst [Unknown]

NARRATIVE: CASE EVENT DATE: 201612
